FAERS Safety Report 5406807-6 (Version None)
Quarter: 2007Q3

REPORT INFORMATION
  Report Type: 
  Country: None (occurrence: None)
  Receive Date: 20070802
  Receipt Date: 20070801
  Transmission Date: 20080115
  Serious: Yes (Hospitalization)
  Sender: FDA-Public Use
  Company Number: 2007P1000362

PATIENT
  Age: 3 Year
  Sex: Male

DRUGS (3)
  1. BUSULFAN (BUSULFAN) [Suspect]
     Indication: STEM CELL TRANSPLANT
     Dosage: 12 ML;QD;IV
     Route: 042
     Dates: start: 20070227, end: 20070302
  2. ETOPOSIDE [Suspect]
     Dosage: 500 MG;QD;IV
     Route: 042
     Dates: start: 20070303, end: 20070303
  3. CYCLOPHOSPHAMIDE [Suspect]
     Dosage: 1000 MG;QD;IV
     Route: 042
     Dates: start: 20070304, end: 20070305

REACTIONS (7)
  - ANOREXIA [None]
  - BONE MARROW TRANSPLANT REJECTION [None]
  - DIARRHOEA [None]
  - HYPONATRAEMIA [None]
  - MALAISE [None]
  - NAUSEA [None]
  - VOMITING [None]
